FAERS Safety Report 16998695 (Version 2)
Quarter: 2019Q4

REPORT INFORMATION
  Report Type: Spontaneous
  Country: US (occurrence: US)
  Receive Date: 20191106
  Receipt Date: 20191213
  Transmission Date: 20200122
  Serious: No
  Sender: FDA-Public Use
  Company Number: US-MYLANLABS-2019M1102948

PATIENT
  Sex: Female
  Weight: 23 kg

DRUGS (2)
  1. DYMISTA [Suspect]
     Active Substance: AZELASTINE HYDROCHLORIDE\FLUTICASONE PROPIONATE
     Indication: HYPERSENSITIVITY
     Dosage: UNK, BID
  2. DYMISTA [Suspect]
     Active Substance: AZELASTINE HYDROCHLORIDE\FLUTICASONE PROPIONATE
     Indication: COUGH
     Dosage: 137, ONCE  A DAY
     Route: 045
     Dates: start: 20191028

REACTIONS (3)
  - Mood altered [Recovered/Resolved]
  - Crying [Recovered/Resolved]
  - Off label use [Recovered/Resolved]
